FAERS Safety Report 9242704 (Version 1)
Quarter: 2013Q2

REPORT INFORMATION
  Report Type: Report from Study
  Country: DE (occurrence: DE)
  Receive Date: 20130419
  Receipt Date: 20130419
  Transmission Date: 20140414
  Serious: Yes (Other)
  Sender: FDA-Public Use
  Company Number: DE-PFIZER INC-2013116715

PATIENT
  Age: 60 Year
  Sex: Male
  Weight: 89 kg

DRUGS (8)
  1. BLINDED PLACEBO [Suspect]
     Indication: ADENOCARCINOMA GASTRIC
     Dosage: 25 MG, UNK
     Dates: start: 20111227
  2. SUNITINIB MALATE [Suspect]
     Indication: ADENOCARCINOMA GASTRIC
     Dosage: 25 MG, UNK
     Dates: start: 20111227
  3. IRINOTECAN HYDROCHLORIDE [Suspect]
     Indication: ADENOCARCINOMA GASTRIC
     Dosage: 380 MG, UNK
     Dates: start: 20111227
  4. IRINOTECAN HYDROCHLORIDE [Suspect]
     Dosage: 300 MG, SINCE 3RD DAY
     Dates: start: 20111229
  5. FLUOROURACIL [Concomitant]
     Indication: ADENOCARCINOMA GASTRIC
     Dosage: 840/4200 MG, UNK
     Dates: start: 20111227
  6. FLUOROURACIL [Concomitant]
     Dosage: 670/3200 MG, DOSE SINCE 3RD DAY
     Dates: start: 20111229
  7. FOLINIC ACID [Concomitant]
     Indication: ADENOCARCINOMA GASTRIC
     Dosage: 840 MG, UNK
     Dates: start: 20111227
  8. FOLINIC ACID [Concomitant]
     Dosage: 670 MG, DOSE SINCE 3RD DAY
     Dates: start: 20111229

REACTIONS (1)
  - Gamma-glutamyltransferase increased [Not Recovered/Not Resolved]
